FAERS Safety Report 10286844 (Version 1)
Quarter: 2014Q3

REPORT INFORMATION
  Report Type: Spontaneous
  Country: FR (occurrence: FR)
  Receive Date: 20140709
  Receipt Date: 20140709
  Transmission Date: 20150326
  Serious: Yes (Other)
  Sender: FDA-Public Use
  Company Number: FR-JNJFOC-20140704046

PATIENT
  Age: 45 Year
  Sex: Male

DRUGS (2)
  1. IMUREL [Suspect]
     Active Substance: AZATHIOPRINE SODIUM
     Indication: ENTEROCOLITIS HAEMORRHAGIC
     Route: 065
     Dates: end: 2014
  2. REMICADE [Suspect]
     Active Substance: INFLIXIMAB
     Indication: ENTEROCOLITIS HAEMORRHAGIC
     Route: 042
     Dates: start: 20140207, end: 2014

REACTIONS (4)
  - Tuberculosis [Unknown]
  - Off label use [Unknown]
  - Infection [Unknown]
  - Incorrect dose administered [Unknown]

NARRATIVE: CASE EVENT DATE: 20140331
